FAERS Safety Report 5599646-7 (Version None)
Quarter: 2008Q1

REPORT INFORMATION
  Report Type: 
  Country: None (occurrence: None)
  Receive Date: 20080118
  Receipt Date: 20080107
  Transmission Date: 20080703
  Serious: Yes (Death)
  Sender: FDA-Public Use
  Company Number: 149

PATIENT
  Sex: Female

DRUGS (1)
  1. FAZACLO ODT [Suspect]
     Indication: PSYCHOTIC DISORDER
     Dosage: 75 MG PO DAILY
     Route: 048
     Dates: start: 20070101, end: 20070901

REACTIONS (3)
  - CARDIAC FAILURE CONGESTIVE [None]
  - CONDITION AGGRAVATED [None]
  - DECREASED ACTIVITY [None]
